FAERS Safety Report 8849322 (Version 2)
Quarter: 2013Q2

REPORT INFORMATION
  Report Type: Spontaneous
  Country: MX (occurrence: MX)
  Receive Date: 20121017
  Receipt Date: 20130412
  Transmission Date: 20140414
  Serious: Yes (Other)
  Sender: FDA-Public Use
  Company Number: PHHY2012MX092356

PATIENT
  Age: 44 Year
  Sex: Male

DRUGS (3)
  1. EXFORGE [Suspect]
     Indication: HYPERTENSION
     Dosage: 1 DF (160/5 MG), DAILY
     Route: 048
     Dates: start: 201208
  2. FISH OIL [Concomitant]
     Indication: PROPHYLAXIS
     Dosage: 3 DF, DAILY
     Dates: start: 201302
  3. ASPIRIN PROTECT [Concomitant]
     Indication: ANTICOAGULANT THERAPY
     Dosage: 1 DF, DAILY
     Dates: start: 201302

REACTIONS (4)
  - Cerebrovascular accident [Not Recovered/Not Resolved]
  - Vision blurred [Not Recovered/Not Resolved]
  - Dizziness [Not Recovered/Not Resolved]
  - Asthenia [Not Recovered/Not Resolved]
